FAERS Safety Report 19755806 (Version 1)
Quarter: 2021Q3

REPORT INFORMATION
  Report Type: Spontaneous
  Country: CN (occurrence: CN)
  Receive Date: 20210827
  Receipt Date: 20210827
  Transmission Date: 20211014
  Serious: Yes (Life-Threatening, Other)
  Sender: FDA-Public Use
  Company Number: CN-BRACCO-2021CN03656

PATIENT
  Age: 76 Year
  Sex: Male

DRUGS (1)
  1. GADOBENATE DIMEGLUMINE [Suspect]
     Active Substance: GADOBENATE DIMEGLUMINE
     Indication: MAGNETIC RESONANCE IMAGING ABDOMINAL
     Dosage: 10 ML, SINGLE
     Route: 042
     Dates: start: 20210818, end: 20210818

REACTIONS (3)
  - Ventricular fibrillation [Recovering/Resolving]
  - Cardiogenic shock [Recovering/Resolving]
  - Adams-Stokes syndrome [Recovering/Resolving]

NARRATIVE: CASE EVENT DATE: 20210818
